FAERS Safety Report 5717174-2 (Version None)
Quarter: 2008Q2

REPORT INFORMATION
  Report Type: 
  Country: None (occurrence: None)
  Receive Date: 20080424
  Receipt Date: 20080414
  Transmission Date: 20081010
  Serious: Yes (Hospitalization)
  Sender: FDA-Public Use
  Company Number: FR-PFIZER INC-2008033454

PATIENT
  Age: 80 Year
  Sex: Male

DRUGS (5)
  1. DALACINE [Suspect]
     Dates: start: 20071122, end: 20071124
  2. METRONIDAZOLE HCL [Suspect]
     Dates: start: 20071122, end: 20071124
  3. SULFAMETHOXAZOLE AND TRIMETHOPRIM [Suspect]
  4. LEVOFLOXACIN [Suspect]
  5. OFLOCET [Suspect]

REACTIONS (2)
  - RENAL FAILURE ACUTE [None]
  - VASCULAR PURPURA [None]
